FAERS Safety Report 4941225-6 (Version None)
Quarter: 2006Q1

REPORT INFORMATION
  Report Type: 
  Country: None (occurrence: None)
  Receive Date: 20060310
  Receipt Date: 20060310
  Transmission Date: 20060701
  Serious: Yes (Hospitalization, Other)
  Sender: FDA-Public Use
  Company Number: None

PATIENT
  Sex: Male
  Weight: 85.7 kg

DRUGS (5)
  1. CYCLOPHOSPHAMIDE [Suspect]
     Indication: B-CELL LYMPHOMA
     Dosage: 795 MG
     Dates: start: 20060221, end: 20060225
  2. DOXORUBICIN HCL [Suspect]
     Dosage: 44 MG
     Dates: start: 20060221, end: 20060224
  3. ETOPOSIDE [Suspect]
     Dosage: 424 MG
     Dates: start: 20060221, end: 20060224
  4. G-CSF FILGRASTIM, AMGEN) [Suspect]
     Dosage: 6 MG
     Dates: start: 20060222, end: 20060227
  5. PREDNISONE [Suspect]
     Dosage: 650 MG
     Dates: start: 20060221, end: 20060225

REACTIONS (2)
  - ANAEMIA [None]
  - HYPERBILIRUBINAEMIA [None]
